FAERS Safety Report 8919456 (Version 1)
Quarter: 2012Q4

REPORT INFORMATION
  Report Type: Spontaneous
  Country: DK (occurrence: None)
  Receive Date: 20121114
  Receipt Date: 20121114
  Transmission Date: 20130627
  Serious: Yes (Hospitalization)
  Sender: FDA-Public Use
  Company Number: 2012-18205

PATIENT
  Age: 62 Year
  Sex: Male

DRUGS (4)
  1. METFORMIN HYDROCHLORIDE [Suspect]
  2. GLIMEPIRIDE [Concomitant]
  3. LOSARTAN/HYDROCHLOORTHIAZIDE, LOSARTAN POTASSIUM) [Concomitant]
  4. PARACETAMOL (PARACETAMOL) [Concomitant]

REACTIONS (5)
  - Lactic acidosis [None]
  - Cardiac arrest [None]
  - Respiratory arrest [None]
  - Bradycardia [None]
  - Haemodialysis [None]
